FAERS Safety Report 14800308 (Version 5)
Quarter: 2018Q4

REPORT INFORMATION
  Report Type: Spontaneous
  Country: US (occurrence: US)
  Receive Date: 20180424
  Receipt Date: 20181220
  Transmission Date: 20190204
  Serious: Yes (Hospitalization, Other)
  Sender: FDA-Public Use
  Company Number: US-PFIZER INC-2018167047

PATIENT
  Age: 41 Year
  Sex: Male
  Weight: 122 kg

DRUGS (12)
  1. VFEND [Suspect]
     Active Substance: VORICONAZOLE
     Dosage: 200 MG, 2X/DAY
     Route: 048
     Dates: start: 20180108
  2. NORVASC [Concomitant]
     Active Substance: AMLODIPINE BESYLATE
     Indication: BLOOD PRESSURE MEASUREMENT
     Dosage: 10 MG, 1X/DAY
     Route: 048
  3. VFEND [Suspect]
     Active Substance: VORICONAZOLE
     Dosage: 400 MG, 2X/DAY
     Route: 048
     Dates: start: 20181205
  4. VFEND [Suspect]
     Active Substance: VORICONAZOLE
     Dosage: 400 MG, 2X/DAY (TAKE 1 TABLET BY MOUTH 2 TIMES A DAILY, TAKE WITH 400 MG PO BID TO EQUAL 450 PO BID)
     Route: 048
  5. VFEND [Suspect]
     Active Substance: VORICONAZOLE
     Dosage: 450 MG, 2X/DAY
     Route: 048
     Dates: start: 20181210
  6. VFEND [Suspect]
     Active Substance: VORICONAZOLE
     Indication: FUNGAL INFECTION
     Dosage: 200 MG, 2X/DAY (TAKE 2 TABLETS BY MOUTH 2 TIMES A DAILY)
     Route: 048
  7. VFEND [Suspect]
     Active Substance: VORICONAZOLE
     Dosage: 50 MG, 2X/DAY
     Route: 048
     Dates: start: 20181210
  8. VFEND [Suspect]
     Active Substance: VORICONAZOLE
     Dosage: 250 MG, 2X/DAY
     Route: 048
     Dates: start: 201710
  9. VFEND [Suspect]
     Active Substance: VORICONAZOLE
     Dosage: 50 MG, 2X/DAY
     Route: 048
     Dates: start: 20181205
  10. VFEND [Suspect]
     Active Substance: VORICONAZOLE
     Dosage: 50 MG, 2X/DAY(TAKE 1 TABLET BY MOUTH 2 TIMES A DAILY, TAKE WITH 400 MG PO BID TO EQUAL 450 PO BID)
     Route: 048
  11. VFEND [Suspect]
     Active Substance: VORICONAZOLE
     Dosage: 50 MG, 2X/DAY
     Route: 048
     Dates: start: 20180108
  12. VFEND [Suspect]
     Active Substance: VORICONAZOLE
     Dosage: 400 MG, 2X/DAY
     Route: 048
     Dates: start: 20181210

REACTIONS (7)
  - Overdose [Unknown]
  - Alopecia [Not Recovered/Not Resolved]
  - Viral titre decreased [Unknown]
  - Meningitis [Unknown]
  - Insomnia [Not Recovered/Not Resolved]
  - Drug ineffective [Not Recovered/Not Resolved]
  - Memory impairment [Not Recovered/Not Resolved]

NARRATIVE: CASE EVENT DATE: 2016
